FAERS Safety Report 6694293-8 (Version None)
Quarter: 2010Q2

REPORT INFORMATION
  Report Type: 
  Country: None (occurrence: None)
  Receive Date: 20100423
  Receipt Date: 20100413
  Transmission Date: 20101027
  Serious: Yes (Other)
  Sender: FDA-Public Use
  Company Number: US-PFIZER INC-2010047528

PATIENT
  Sex: Female
  Weight: 95.254 kg

DRUGS (9)
  1. NARDIL [Suspect]
     Indication: MAJOR DEPRESSION
     Route: 048
     Dates: start: 19870101
  2. NARDIL [Suspect]
     Dosage: 75 MG, DAILY
  3. NARDIL [Suspect]
     Dosage: 30 MG, 2X/DAY
  4. XANAX [Suspect]
     Indication: ANXIETY
  5. LIPITOR [Concomitant]
     Indication: BLOOD CHOLESTEROL INCREASED
  6. TRIAMTERENE [Concomitant]
  7. CALCIUM [Concomitant]
  8. VITAMIN D [Concomitant]
  9. VITAMIN B-12 [Concomitant]

REACTIONS (4)
  - BLOOD PRESSURE DECREASED [None]
  - HYPERTENSIVE CRISIS [None]
  - PULSE ABSENT [None]
  - WEIGHT INCREASED [None]
